FAERS Safety Report 9713951 (Version 1)
Quarter: 2013Q4

REPORT INFORMATION
  Report Type: Spontaneous
  Country: US (occurrence: US)
  Receive Date: 20131126
  Receipt Date: 20131126
  Transmission Date: 20140711
  Serious: No
  Sender: FDA-Public Use
  Company Number: US-GILEAD-2008-0018218

PATIENT
  Age: 40 Year
  Sex: Female
  Weight: 149.68 kg

DRUGS (9)
  1. LETAIRIS [Suspect]
     Indication: PORTAL HYPERTENSION
     Route: 048
     Dates: start: 20080826, end: 20080908
  2. LETAIRIS [Suspect]
     Indication: SYSTEMIC SCLEROSIS
  3. REVATIO [Concomitant]
     Route: 048
  4. LEVOTHYROXIN [Concomitant]
     Route: 048
  5. LEVOTHYROID [Concomitant]
     Route: 048
  6. LISINOPRIL [Concomitant]
     Route: 048
  7. BUMEX [Concomitant]
     Route: 048
  8. PREVACID [Concomitant]
     Route: 048
  9. PHENERGAN [Concomitant]
     Route: 048

REACTIONS (1)
  - Oedema peripheral [None]
